FAERS Safety Report 8136636-4 (Version None)
Quarter: 2012Q1

REPORT INFORMATION
  Report Type: 
  Country: None (occurrence: None)
  Receive Date: 20120214
  Receipt Date: 20120201
  Transmission Date: 20120608
  Serious: Yes (Other)
  Sender: FDA-Public Use
  Company Number: CA-ROCHE-1038833

PATIENT
  Sex: Female

DRUGS (5)
  1. SYMBICORT [Concomitant]
  2. XOLAIR [Suspect]
     Indication: ASTHMA
     Route: 058
     Dates: start: 20110914
  3. XOLAIR [Suspect]
     Dates: start: 20120104
  4. APO-SALVENT [Concomitant]
  5. SINGULAIR [Concomitant]

REACTIONS (8)
  - PARAESTHESIA [None]
  - INJECTION SITE PARAESTHESIA [None]
  - DISCOMFORT [None]
  - NASOPHARYNGITIS [None]
  - PAIN [None]
  - INJECTION SITE PAIN [None]
  - ROAD TRAFFIC ACCIDENT [None]
  - LOWER RESPIRATORY TRACT INFECTION [None]
